FAERS Safety Report 10986992 (Version 1)
Quarter: 2015Q2

REPORT INFORMATION
  Report Type: Spontaneous
  Country: US (occurrence: None)
  Receive Date: 20150402
  Receipt Date: 20150402
  Transmission Date: 20150821
  Serious: Yes (Other)
  Sender: FDA-Public Use
  Company Number: AMAG201500204

PATIENT
  Sex: Female

DRUGS (1)
  1. MAKENA [Suspect]
     Active Substance: HYDROXYPROGESTERONE CAPROATE
     Indication: PREMATURE DELIVERY
     Route: 030
     Dates: start: 20141107, end: 20150220

REACTIONS (7)
  - Premature delivery [None]
  - Placenta accreta [None]
  - Hysterectomy [None]
  - Uterine haemorrhage [None]
  - Uterine rupture [None]
  - Maternal exposure during pregnancy [None]
  - Caesarean section [None]

NARRATIVE: CASE EVENT DATE: 20150222
